FAERS Safety Report 4862707-1 (Version None)
Quarter: 2005Q4

REPORT INFORMATION
  Report Type: 
  Country: None (occurrence: None)
  Receive Date: 20051221
  Receipt Date: 20051213
  Transmission Date: 20060501
  Serious: Yes (Death, Hospitalization)
  Sender: FDA-Public Use
  Company Number: US-MERCK-0512USA02495

PATIENT
  Age: 75 Year
  Sex: Male

DRUGS (5)
  1. PRIMAXIN [Suspect]
     Route: 065
  2. VANCOMYCIN [Suspect]
     Route: 065
  3. PIPERACILLIN [Suspect]
     Route: 065
  4. TAZOBACTAM [Suspect]
     Route: 065
  5. GATIFLOXACIN [Suspect]
     Route: 065

REACTIONS (4)
  - CLOSTRIDIAL INFECTION [None]
  - CLOSTRIDIUM COLITIS [None]
  - DEATH [None]
  - MEGACOLON [None]
